FAERS Safety Report 7738264-9 (Version None)
Quarter: 2011Q3

REPORT INFORMATION
  Report Type: 
  Country: None (occurrence: None)
  Receive Date: 20110908
  Receipt Date: 20110906
  Transmission Date: 20111222
  Serious: Yes (Life-Threatening, Hospitalization)
  Sender: FDA-Public Use
  Company Number: JP-BAYER-2011-082817

PATIENT
  Age: 62 Year
  Sex: Male

DRUGS (2)
  1. NEXAVAR [Suspect]
     Indication: HEPATIC NEOPLASM MALIGNANT
     Dosage: 400 MG, DAILY
     Route: 048
     Dates: start: 20110322, end: 20110810
  2. MIRIPLA [Concomitant]
     Indication: THERAPEUTIC EMBOLISATION
     Dosage: UNK
     Route: 013
     Dates: start: 20110801, end: 20110801

REACTIONS (1)
  - HEPATIC INFARCTION [None]
